FAERS Safety Report 7418892-0 (Version None)
Quarter: 2011Q2

REPORT INFORMATION
  Report Type: 
  Country: None (occurrence: None)
  Receive Date: 20110415
  Receipt Date: 20110413
  Transmission Date: 20111010
  Serious: Yes (Hospitalization)
  Sender: FDA-Public Use
  Company Number: TR-ABBOTT-11P-161-0718537-00

PATIENT
  Age: 26 Year
  Sex: Female
  Weight: 36 kg

DRUGS (1)
  1. HUMIRA [Suspect]
     Indication: CROHN'S DISEASE
     Route: 058
     Dates: start: 20110331, end: 20110403

REACTIONS (1)
  - KIDNEY ENLARGEMENT [None]
